FAERS Safety Report 21598288 (Version 1)
Quarter: 2022Q4

REPORT INFORMATION
  Report Type: Spontaneous
  Country: FR (occurrence: FR)
  Receive Date: 20221115
  Receipt Date: 20221115
  Transmission Date: 20230113
  Serious: Yes (Hospitalization, Other)
  Sender: FDA-Public Use
  Company Number: None

PATIENT
  Age: 30 Year
  Sex: Male

DRUGS (4)
  1. ZOLPIDEM TARTRATE [Suspect]
     Active Substance: ZOLPIDEM TARTRATE
     Dosage: 1 CP/J
     Route: 045
  2. METHADONE [Suspect]
     Active Substance: METHADONE HYDROCHLORIDE
     Dosage: 75 MG/D FOR SEVERAL YEARS
     Route: 048
  3. OXAZEPAM [Suspect]
     Active Substance: OXAZEPAM
     Dosage: 2 CPS/DAY
     Route: 045
  4. ALCOHOL [Suspect]
     Active Substance: ALCOHOL
     Dosage: 2 TO 3 BEERS OF 50 CL AT 7?/DAY
     Route: 048

REACTIONS (1)
  - Drug use disorder [Not Recovered/Not Resolved]
